FAERS Safety Report 7411334-0 (Version None)
Quarter: 2011Q2

REPORT INFORMATION
  Report Type: 
  Country: None (occurrence: None)
  Receive Date: 20110413
  Receipt Date: 20110407
  Transmission Date: 20111010
  Serious: Yes (Death, Hospitalization)
  Sender: FDA-Public Use
  Company Number: US-CELGENEUS-CA046-11-0063

PATIENT
  Sex: Male
  Weight: 98 kg

DRUGS (30)
  1. GEMCITABINE [Suspect]
     Dates: start: 20100930
  2. OXYCODONE [Concomitant]
     Indication: ABDOMINAL PAIN
     Route: 048
     Dates: start: 20100824
  3. COQ10 [Concomitant]
     Indication: CORONARY ARTERY DISEASE
     Route: 048
     Dates: start: 20050101
  4. MIRALAX [Concomitant]
     Indication: CONSTIPATION
     Route: 048
     Dates: start: 20100920
  5. NORCO [Concomitant]
     Indication: PAIN
     Route: 048
     Dates: start: 20101228
  6. LASIX [Concomitant]
     Route: 048
     Dates: start: 20101228
  7. AVALIDE [Concomitant]
     Indication: HYPERTENSION
     Route: 048
     Dates: start: 20050101
  8. IMODIUM A-D [Concomitant]
     Route: 048
     Dates: start: 20101018
  9. APIDRA [Concomitant]
     Dosage: PRN
     Route: 058
     Dates: start: 20010101
  10. HYDROCHLOROTHIAZIDE [Concomitant]
     Indication: HYPERTENSION
     Route: 048
     Dates: start: 20050101
  11. EFFEXOR [Concomitant]
     Indication: DEPRESSION
     Route: 048
     Dates: start: 20100824
  12. CENTRUM SILVER [Concomitant]
     Indication: PROPHYLAXIS
     Route: 048
     Dates: start: 20000101
  13. MAGNESIUM CITRATE [Concomitant]
     Indication: CONSTIPATION
     Route: 048
     Dates: start: 20100920
  14. CLOBETASOL PROPIONATE [Concomitant]
     Indication: RASH MACULO-PAPULAR
     Route: 061
     Dates: start: 20101120
  15. DECADRON [Concomitant]
     Indication: PREMEDICATION
     Route: 051
     Dates: start: 20100930
  16. ASPIRIN [Concomitant]
     Indication: CORONARY ARTERY DISEASE
     Route: 048
     Dates: start: 20010101
  17. MILK OF MAGNESIA TAB [Concomitant]
     Indication: CONSTIPATION
     Route: 048
     Dates: start: 20100913
  18. POTASSIUM CHLORIDE [Concomitant]
     Indication: PROPHYLAXIS
     Route: 048
     Dates: start: 20101228
  19. OXYCONTIN [Concomitant]
     Indication: ABDOMINAL PAIN
     Route: 048
     Dates: start: 20100824
  20. ALOXI [Concomitant]
     Indication: PREMEDICATION
     Route: 051
     Dates: start: 20100930
  21. CARVEDILOL [Concomitant]
     Indication: CORONARY ARTERY DISEASE
     Route: 048
     Dates: start: 20060101
  22. LANTUS [Concomitant]
     Route: 058
     Dates: start: 20010101
  23. METFORMIN [Concomitant]
     Route: 048
     Dates: start: 20010101
  24. PRAVASTATIN [Concomitant]
     Indication: CORONARY ARTERY DISEASE
     Route: 048
     Dates: start: 20050101
  25. MARINOL [Concomitant]
     Route: 048
     Dates: start: 20100907
  26. SENOKOT [Concomitant]
     Indication: CONSTIPATION
     Route: 048
     Dates: start: 20100920
  27. EXLAX [Concomitant]
     Indication: CONSTIPATION
     Dosage: PRN
     Route: 048
     Dates: start: 20101025
  28. ABRAXANE [Suspect]
     Dates: start: 20100930
  29. COMPAZINE [Concomitant]
     Indication: NAUSEA
     Route: 048
     Dates: start: 20100930
  30. METOPROLOL TARTRATE [Concomitant]
     Indication: HYPERTENSION
     Route: 048
     Dates: start: 20050101

REACTIONS (1)
  - HEPATIC FUNCTION ABNORMAL [None]
